FAERS Safety Report 5187181-X (Version None)
Quarter: 2006Q4

REPORT INFORMATION
  Report Type: 
  Country: None (occurrence: None)
  Receive Date: 20061214
  Receipt Date: 20061204
  Transmission Date: 20070319
  Serious: Yes (Other)
  Sender: FDA-Public Use
  Company Number: 2006150890

PATIENT
  Age: 63 Year
  Sex: Male

DRUGS (5)
  1. NORVASC [Suspect]
     Dosage: 7.5 MG (2.5 MG, FREQUENCY: TID), ORAL; SEE IMAGE
     Route: 048
     Dates: start: 20060817
  2. LOSARTAN POTASSIUM [Concomitant]
  3. MILTAX            (KETOPROFEN) [Concomitant]
  4. MOHRUS              (KETOPROFEN) [Concomitant]
  5. VOALLA      (DEXAMETHASONE VALERATE) [Concomitant]

REACTIONS (3)
  - INAPPROPRIATE SCHEDULE OF DRUG ADMINISTRATION [None]
  - OCULAR ICTERUS [None]
  - YELLOW SKIN [None]
